FAERS Safety Report 6853712-4 (Version None)
Quarter: 2010Q3

REPORT INFORMATION
  Report Type: 
  Country: None (occurrence: None)
  Receive Date: 20100717
  Receipt Date: 20071213
  Transmission Date: 20110219
  Serious: No
  Sender: FDA-Public Use
  Company Number: US-PFIZER INC-2007106350

PATIENT
  Sex: Female

DRUGS (4)
  1. CHANTIX [Suspect]
     Dates: start: 20071201
  2. PLAVIX [Concomitant]
  3. ACETYLSALICYLIC ACID [Concomitant]
  4. PLETAL [Concomitant]

REACTIONS (2)
  - GINGIVAL BLEEDING [None]
  - POSTMENOPAUSAL HAEMORRHAGE [None]
